FAERS Safety Report 11862866 (Version 1)
Quarter: 2015Q4

REPORT INFORMATION
  Report Type: Spontaneous
  Country: JP (occurrence: JP)
  Receive Date: 20151223
  Receipt Date: 20151223
  Transmission Date: 20160305
  Serious: Yes (Other)
  Sender: FDA-Public Use
  Company Number: JP-ASTRAZENECA-2015SF29526

PATIENT
  Age: 40 Year
  Sex: Male

DRUGS (1)
  1. MEROPEN [Suspect]
     Active Substance: MEROPENEM
     Route: 042

REACTIONS (5)
  - Agitation [Unknown]
  - Myoclonus [Unknown]
  - Epilepsy [Unknown]
  - Altered state of consciousness [Unknown]
  - Tongue paralysis [Unknown]
